FAERS Safety Report 12819632 (Version 1)
Quarter: 2016Q4

REPORT INFORMATION
  Report Type: Spontaneous
  Country: US (occurrence: US)
  Receive Date: 20161006
  Receipt Date: 20161006
  Transmission Date: 20170207
  Serious: Yes (Life-Threatening)
  Sender: FDA-Public Use
  Company Number: None

PATIENT
  Age: 33 Year
  Sex: Female
  Weight: 77.5 kg

DRUGS (2)
  1. LACTATED RINGERS [Concomitant]
     Active Substance: CALCIUM CHLORIDE\POTASSIUM CHLORIDE\SODIUM CHLORIDE\SODIUM LACTATE
  2. CERVIDIL [Suspect]
     Active Substance: DINOPROSTONE
     Indication: INDUCED LABOUR
     Dosage: ?          OTHER FREQUENCY:ONE TIME;?12 HOUR?
     Route: 067

REACTIONS (9)
  - Vaginal haemorrhage [None]
  - Anaphylactoid syndrome of pregnancy [None]
  - Hypoxia [None]
  - Caesarean section [None]
  - Hypotension [None]
  - Foetal heart rate deceleration abnormality [None]
  - Tachycardia [None]
  - Pulse absent [None]
  - Syncope [None]

NARRATIVE: CASE EVENT DATE: 20160726
